FAERS Safety Report 8597635-1 (Version None)
Quarter: 2012Q3

REPORT INFORMATION
  Report Type: 
  Country: None (occurrence: None)
  Receive Date: 20120816
  Receipt Date: 20120808
  Transmission Date: 20120928
  Serious: Yes (Hospitalization)
  Sender: FDA-Public Use
  Company Number: US-BAYER-2012-057446

PATIENT
  Age: 22 Year
  Sex: Female

DRUGS (1)
  1. MIRENA [Suspect]
     Indication: CONTRACEPTION
     Dosage: 20 MCG/24HR, CONT
     Route: 015
     Dates: start: 20110401

REACTIONS (4)
  - MEDICAL DEVICE DISCOMFORT [None]
  - ABDOMINAL TENDERNESS [None]
  - KIDNEY INFECTION [None]
  - CHEST PAIN [None]
